FAERS Safety Report 20903484 (Version 1)
Quarter: 2022Q2

REPORT INFORMATION
  Report Type: Spontaneous
  Country: NL (occurrence: NL)
  Receive Date: 20220602
  Receipt Date: 20220602
  Transmission Date: 20220721
  Serious: Yes (Disabling)
  Sender: FDA-Public Use
  Company Number: NL-ORGANON-O2205NLD002159

PATIENT
  Sex: Female

DRUGS (4)
  1. SINEMET [Suspect]
     Active Substance: CARBIDOPA\LEVODOPA
     Indication: Dystonia
     Dosage: HIGHER DOSES: 125 AND 62.5 IN THE MORNING, 62.5 IN THE AFTERNOON, 125 AND 62.5 IN THE EVENING
     Route: 048
     Dates: start: 2002, end: 2012
  2. SINEMET [Suspect]
     Active Substance: CARBIDOPA\LEVODOPA
     Dosage: 3X PER DAY 62.5
     Route: 048
     Dates: start: 2021
  3. SINEMET [Suspect]
     Active Substance: CARBIDOPA\LEVODOPA
     Dosage: HIGHER DOSES: 125 AND 62.5 IN THE MORNING, 62.5 IN THE AFTERNOON, 125 AND 62.5 IN THE EVENING
     Route: 048
     Dates: start: 2002, end: 2012
  4. ASTRAZENECA COVID-19 VACCINE [Suspect]
     Active Substance: AZD-1222
     Dosage: UNK

REACTIONS (5)
  - Gait inability [Unknown]
  - Dry mouth [Unknown]
  - Dysgeusia [Unknown]
  - Urticaria [Recovered/Resolved]
  - Abdominal discomfort [Recovered/Resolved]

NARRATIVE: CASE EVENT DATE: 20070101
